FAERS Safety Report 15464215 (Version 2)
Quarter: 2018Q4

REPORT INFORMATION
  Report Type: Report from Study
  Country: CA (occurrence: CA)
  Receive Date: 20181004
  Receipt Date: 20181127
  Transmission Date: 20190204
  Serious: Yes (Other)
  Sender: FDA-Public Use
  Company Number: CA-JNJFOC-20180801213

PATIENT
  Age: 79 Year
  Sex: Male
  Weight: 90 kg

DRUGS (1)
  1. REMICADE [Suspect]
     Active Substance: INFLIXIMAB
     Indication: CROHN^S DISEASE
     Dosage: STRENGTH = 100 MG
     Route: 042
     Dates: start: 20140120

REACTIONS (3)
  - Lymphadenopathy [Unknown]
  - Metastases to spine [Not Recovered/Not Resolved]
  - Metastatic carcinoma of the bladder [Not Recovered/Not Resolved]

NARRATIVE: CASE EVENT DATE: 20180921
